FAERS Safety Report 10182606 (Version 1)
Quarter: 2014Q2

REPORT INFORMATION
  Report Type: Spontaneous
  Country: US (occurrence: None)
  Receive Date: 20140519
  Receipt Date: 20140519
  Transmission Date: 20141212
  Serious: No
  Sender: FDA-Public Use
  Company Number: None

PATIENT
  Age: 56 Year
  Sex: Male

DRUGS (1)
  1. ACTHAR [Suspect]
     Indication: MULTIPLE SCLEROSIS RELAPSE

REACTIONS (1)
  - Feeling abnormal [None]
